FAERS Safety Report 19116585 (Version 1)
Quarter: 2021Q2

REPORT INFORMATION
  Report Type: Spontaneous
  Country: JP (occurrence: JP)
  Receive Date: 20210409
  Receipt Date: 20210409
  Transmission Date: 20210717
  Serious: Yes (Life-Threatening, Hospitalization)
  Sender: FDA-Public Use
  Company Number: JP-ASTRAZENECA-2021A275550

PATIENT
  Age: 79 Year

DRUGS (7)
  1. LOKELMA [Suspect]
     Active Substance: SODIUM ZIRCONIUM CYCLOSILICATE
     Indication: HYPERKALAEMIA
     Route: 048
     Dates: start: 20210205, end: 20210208
  2. ATORVASTATIN [Concomitant]
     Active Substance: ATORVASTATIN
     Route: 048
  3. AMLODIPINE [Concomitant]
     Active Substance: AMLODIPINE BESYLATE
     Route: 048
  4. LUNESTA [Concomitant]
     Active Substance: ESZOPICLONE
     Indication: INSOMNIA
     Dosage: AT NIGHT, DOSE UNKNOWN
     Route: 048
  5. AMITIZA [Concomitant]
     Active Substance: LUBIPROSTONE
     Indication: CONSTIPATION
     Dosage: AS REQUIRED, DOSE UNKNOWN
     Route: 048
  6. SPHERICAL CARBON ADSORBENT [Concomitant]
     Route: 048
  7. SODIUM BICARBONATE. [Concomitant]
     Active Substance: SODIUM BICARBONATE
     Dosage: AS REQUIRED
     Route: 048

REACTIONS (1)
  - Intestinal perforation [Recovered/Resolved with Sequelae]

NARRATIVE: CASE EVENT DATE: 20210208
